FAERS Safety Report 19860016 (Version 2)
Quarter: 2021Q4

REPORT INFORMATION
  Report Type: Spontaneous
  Country: BR (occurrence: BR)
  Receive Date: 20210921
  Receipt Date: 20211115
  Transmission Date: 20220304
  Serious: Yes (Hospitalization, Other)
  Sender: FDA-Public Use
  Company Number: BR-ASTRAZENECA-2021A720668

PATIENT
  Sex: Female

DRUGS (4)
  1. METOPROLOL SUCCINATE [Suspect]
     Active Substance: METOPROLOL SUCCINATE
     Dosage: 1 TABLET IN THE MORNING AND 1 TABLET AT NIGHT
     Route: 048
     Dates: start: 2011
  2. DAPAGLIFLOZIN [Suspect]
     Active Substance: DAPAGLIFLOZIN
     Dosage: IN AUG-2021 SHE STOPPED USING FORXIGA, AS SHE WAS UNABLE TO BUY IT
     Route: 048
     Dates: start: 2021
  3. WARFARIN SODIUM [Concomitant]
     Active Substance: WARFARIN SODIUM
     Route: 065
     Dates: start: 2020
  4. MOTILEX [Concomitant]
     Dosage: A TABLET
     Route: 065

REACTIONS (5)
  - Mitral valve disease [Unknown]
  - Diabetes mellitus [Not Recovered/Not Resolved]
  - Blood glucose abnormal [Unknown]
  - General physical health deterioration [Unknown]
  - Product use issue [Not Recovered/Not Resolved]

NARRATIVE: CASE EVENT DATE: 20110101
